FAERS Safety Report 11291875 (Version 3)
Quarter: 2015Q4

REPORT INFORMATION
  Report Type: Spontaneous
  Country: JP (occurrence: JP)
  Receive Date: 20150722
  Receipt Date: 20151124
  Transmission Date: 20160304
  Serious: Yes (Death)
  Sender: FDA-Public Use
  Company Number: JP-TEVA-577706ISR

PATIENT
  Age: 64 Year
  Sex: Male
  Weight: 47 kg

DRUGS (15)
  1. E-FEN BUCCAL [Suspect]
     Active Substance: FENTANYL CITRATE
     Dosage: 100 MICROGRAM DAILY;
     Route: 002
     Dates: start: 20150427, end: 20150518
  2. E-FEN BUCCAL [Suspect]
     Active Substance: FENTANYL CITRATE
     Dosage: 200 MICROGRAM DAILY;
     Route: 002
     Dates: start: 20150526, end: 20150528
  3. NEXIUM [Concomitant]
     Active Substance: ESOMEPRAZOLE MAGNESIUM
     Indication: GASTROOESOPHAGEAL REFLUX DISEASE
     Dosage: 20 MILLIGRAM DAILY;
     Route: 048
     Dates: start: 20141208, end: 20150521
  4. FENTOS [Concomitant]
     Active Substance: FENTANYL
     Dosage: 16 MILLIGRAM DAILY;
     Route: 062
     Dates: start: 20150423, end: 20150518
  5. E-FEN BUCCAL [Suspect]
     Active Substance: FENTANYL CITRATE
     Dosage: 100 MICROGRAM DAILY;
     Route: 002
     Dates: start: 20150423, end: 20150518
  6. FENTOS [Concomitant]
     Active Substance: FENTANYL
     Indication: CANCER PAIN
     Dosage: 4 MILLIGRAM DAILY;
     Route: 062
     Dates: start: 20150328, end: 20150331
  7. FENTOS [Concomitant]
     Active Substance: FENTANYL
     Dosage: 12 MILLIGRAM DAILY;
     Route: 062
     Dates: start: 20150409, end: 20150422
  8. MAGMITT [Concomitant]
     Active Substance: MAGNESIUM OXIDE
     Indication: CONSTIPATION
     Dosage: 750 MILLIGRAM DAILY;
     Route: 048
     Dates: start: 20150214, end: 20150521
  9. SERENACE [Concomitant]
     Active Substance: HALOPERIDOL
     Indication: CANCER PAIN
     Dosage: 1 DOSAGE FORMS DAILY;
     Route: 041
     Dates: start: 20150520, end: 20150527
  10. FENTOS [Concomitant]
     Active Substance: FENTANYL
     Dosage: 24 MILLIGRAM DAILY;
     Route: 062
     Dates: start: 20150519, end: 20150530
  11. E-FEN BUCCAL [Suspect]
     Active Substance: FENTANYL CITRATE
     Dosage: 100-300 MICROGRAM
     Route: 002
     Dates: start: 20150417, end: 20150429
  12. E-FEN BUCCAL [Suspect]
     Active Substance: FENTANYL CITRATE
     Indication: BREAKTHROUGH PAIN
     Dosage: 0-50 MICROGRAM
     Route: 002
     Dates: start: 20150330, end: 20150404
  13. E-FEN BUCCAL [Suspect]
     Active Substance: FENTANYL CITRATE
     Dosage: 0-800 MICROGRAM
     Route: 002
     Dates: start: 20150519, end: 20150525
  14. LASIX [Concomitant]
     Active Substance: FUROSEMIDE
     Indication: OEDEMA
     Dosage: 20 MILLIGRAM DAILY;
     Route: 048
     Dates: start: 20150212, end: 20150521
  15. FENTOS [Concomitant]
     Active Substance: FENTANYL
     Dosage: 8 MILLIGRAM DAILY;
     Route: 062
     Dates: start: 20150401, end: 20150408

REACTIONS (1)
  - Gastric cancer [Fatal]

NARRATIVE: CASE EVENT DATE: 20150601
